FAERS Safety Report 5361189-3 (Version None)
Quarter: 2007Q2

REPORT INFORMATION
  Report Type: 
  Country: None (occurrence: None)
  Receive Date: 20070614
  Receipt Date: 20070601
  Transmission Date: 20071010
  Serious: Yes (Hospitalization)
  Sender: FDA-Public Use
  Company Number: S07-FRA-02491-01

PATIENT
  Age: 62 Year
  Sex: Female

DRUGS (4)
  1. ESCITALOPRAM [Suspect]
     Dates: start: 20070503, end: 20070507
  2. IXPRIM (PARACETAMOL) [Suspect]
     Dates: end: 20070507
  3. XANAX [Concomitant]
  4. VOLTAREN [Concomitant]

REACTIONS (3)
  - DRUG INTERACTION [None]
  - DRUG SCREEN POSITIVE [None]
  - SEROTONIN SYNDROME [None]
